FAERS Safety Report 6663687-9 (Version None)
Quarter: 2010Q2

REPORT INFORMATION
  Report Type: 
  Country: None (occurrence: None)
  Receive Date: 20100401
  Receipt Date: 20100325
  Transmission Date: 20101027
  Serious: Yes (Death)
  Sender: FDA-Public Use
  Company Number: GB-ROCHE-693400

PATIENT
  Age: 60 Year
  Sex: Male
  Weight: 167 kg

DRUGS (1)
  1. XENICAL [Suspect]
     Indication: OVERWEIGHT
     Route: 048
     Dates: start: 20010716, end: 20040101

REACTIONS (1)
  - HEPATIC FAILURE [None]
